FAERS Safety Report 4284914-1 (Version None)
Quarter: 2004Q1

REPORT INFORMATION
  Report Type: 
  Country: None (occurrence: None)
  Receive Date: 20040121
  Receipt Date: 20021126
  Transmission Date: 20041129
  Serious: Yes (Hospitalization)
  Sender: FDA-Public Use
  Company Number: A03200201449

PATIENT
  Age: 72 Year
  Sex: Male

DRUGS (3)
  1. PLAVIX [Suspect]
     Indication: CORONARY ARTERY OCCLUSION
     Dosage: 75 MG QD - ORAL
     Route: 048
     Dates: start: 20020501, end: 20021101
  2. ACETYLSALICYLIC ACID SRT [Concomitant]
  3. PANTOPRAZOLE SODIUM [Concomitant]

REACTIONS (1)
  - PANCYTOPENIA [None]
